FAERS Safety Report 4901663-4 (Version None)
Quarter: 2006Q1

REPORT INFORMATION
  Report Type: 
  Country: None (occurrence: None)
  Receive Date: 20060206
  Receipt Date: 20050927
  Transmission Date: 20060701
  Serious: No
  Sender: FDA-Public Use
  Company Number: US-BRISTOL-MYERS SQUIBB COMPANY-13123765

PATIENT
  Age: 47 Year
  Sex: Female
  Weight: 42 kg

DRUGS (6)
  1. TAXOL [Suspect]
     Indication: GASTRIC CANCER
     Route: 042
     Dates: start: 20050903, end: 20050903
  2. CARBOPLATIN [Concomitant]
     Indication: GASTRIC CANCER
     Route: 042
  3. DECADRON PHOSPHATE [Concomitant]
     Indication: PREMEDICATION
     Route: 042
  4. BENADRYL [Concomitant]
     Indication: PREMEDICATION
     Route: 042
  5. PEPCID [Concomitant]
     Indication: PREMEDICATION
     Route: 042
  6. KYTRIL [Concomitant]
     Indication: PREMEDICATION
     Route: 042

REACTIONS (4)
  - DYSPNOEA [None]
  - ERYTHEMA [None]
  - HYPERHIDROSIS [None]
  - HYPOTENSION [None]
